FAERS Safety Report 8095069-X (Version None)
Quarter: 2012Q1

REPORT INFORMATION
  Report Type: 
  Country: None (occurrence: None)
  Receive Date: 20120131
  Receipt Date: 20120130
  Transmission Date: 20120608
  Serious: Yes (Hospitalization)
  Sender: FDA-Public Use
  Company Number: US-VERTEX PHARMACEUTICALS INC.-AE-2012-001516

PATIENT
  Age: 55 Year
  Sex: Male

DRUGS (4)
  1. WELCHOL [Concomitant]
  2. RIBAVIRIN [Concomitant]
     Indication: HEPATITIS C
  3. INTERFERON [Concomitant]
     Indication: HEPATITIS C
  4. INCIVEK [Suspect]
     Indication: HEPATITIS C

REACTIONS (2)
  - PULMONARY FIBROSIS [None]
  - ACUTE RESPIRATORY DISTRESS SYNDROME [None]
